FAERS Safety Report 5507723-1 (Version None)
Quarter: 2007Q4

REPORT INFORMATION
  Report Type: 
  Country: None (occurrence: None)
  Receive Date: 20071105
  Receipt Date: 20071105
  Transmission Date: 20080405
  Serious: Yes (Hospitalization)
  Sender: FDA-Public Use
  Company Number: None

PATIENT
  Age: 40 Year
  Sex: Male

DRUGS (1)
  1. PHENYTOIN [Suspect]
     Dosage: 300MG PO TID PO
     Route: 048

REACTIONS (3)
  - APHASIA [None]
  - ASTHENIA [None]
  - THERAPEUTIC AGENT TOXICITY [None]
